FAERS Safety Report 10908761 (Version 3)
Quarter: 2015Q3

REPORT INFORMATION
  Report Type: Spontaneous
  Country: US (occurrence: US)
  Receive Date: 20150312
  Receipt Date: 20150807
  Transmission Date: 20151125
  Serious: Yes (Hospitalization, Other)
  Sender: FDA-Public Use
  Company Number: US-INCYTE CORPORATION-2015IN000339

PATIENT
  Age: 54 Year
  Sex: Male
  Weight: 90.7 kg

DRUGS (18)
  1. LISINOPRIL. [Concomitant]
     Active Substance: LISINOPRIL
  2. FLONASE [Concomitant]
     Active Substance: FLUTICASONE PROPIONATE
  3. NICARDIPINE [Concomitant]
     Active Substance: NICARDIPINE
  4. ATENOLOL. [Concomitant]
     Active Substance: ATENOLOL
  5. DITROPAN [Concomitant]
     Active Substance: OXYBUTYNIN CHLORIDE
     Dosage: TWICE A DAY
  6. TYLENOL [Concomitant]
     Active Substance: ACETAMINOPHEN
  7. VALSARTAN. [Concomitant]
     Active Substance: VALSARTAN
  8. JAKAFI [Suspect]
     Active Substance: RUXOLITINIB
     Dosage: 10 MG, BID
     Route: 048
     Dates: start: 20150101
  9. SYNTHROID [Concomitant]
     Active Substance: LEVOTHYROXINE SODIUM
  10. IBUPROFEN. [Concomitant]
     Active Substance: IBUPROFEN
     Dosage: PRN
  11. IMODIUM [Concomitant]
     Active Substance: LOPERAMIDE HYDROCHLORIDE
     Dosage: PRN
  12. NITROGLYCERINE [Concomitant]
     Active Substance: NITROGLYCERIN
     Dosage: PRN
     Route: 060
  13. JAKAFI [Suspect]
     Active Substance: RUXOLITINIB
     Indication: POLYCYTHAEMIA VERA
     Dosage: 5 MG, BID
     Route: 048
     Dates: start: 20141229
  14. JAKAFI [Suspect]
     Active Substance: RUXOLITINIB
     Dosage: 5 MG, BID
     Route: 048
  15. ALLOPURINOL. [Concomitant]
     Active Substance: ALLOPURINOL
  16. NORCO [Concomitant]
     Active Substance: ACETAMINOPHEN\HYDROCODONE BITARTRATE
     Dosage: PRN
  17. HYOSCYAMINE. [Concomitant]
     Active Substance: HYOSCYAMINE
     Indication: MUSCLE SPASMS
  18. PREVACID [Concomitant]
     Active Substance: LANSOPRAZOLE

REACTIONS (14)
  - Sinusitis [Unknown]
  - Pruritus [Unknown]
  - Early satiety [Unknown]
  - Chest pain [Unknown]
  - Hypertension [Unknown]
  - Disturbance in attention [Unknown]
  - Dizziness [Unknown]
  - Bradycardia [Unknown]
  - Bone pain [Unknown]
  - Dysuria [Unknown]
  - Abdominal pain upper [Unknown]
  - Tooth infection [Unknown]
  - Hypoaesthesia [Unknown]
  - Fatigue [Unknown]

NARRATIVE: CASE EVENT DATE: 20150103
